FAERS Safety Report 6672313-4 (Version None)
Quarter: 2010Q2

REPORT INFORMATION
  Report Type: 
  Country: None (occurrence: None)
  Receive Date: 20100408
  Receipt Date: 20100330
  Transmission Date: 20101027
  Serious: Yes (Other)
  Sender: FDA-Public Use
  Company Number: US-RB-006434-10

PATIENT
  Age: 40 Year
  Sex: Male

DRUGS (1)
  1. MUCINEX [Suspect]
     Dosage: TOOK ONE TABLET EVERY 12 HOURS FOR 3 DAYS
     Route: 048
     Dates: start: 20100328

REACTIONS (1)
  - BLOOD PRESSURE INCREASED [None]
